FAERS Safety Report 7999728-6 (Version None)
Quarter: 2011Q4

REPORT INFORMATION
  Report Type: 
  Country: None (occurrence: None)
  Receive Date: 20111221
  Receipt Date: 20111208
  Transmission Date: 20120403
  Serious: Yes (Hospitalization)
  Sender: FDA-Public Use
  Company Number: FR-MYLANLABS-2011S1023125

PATIENT
  Age: 86 Year
  Sex: Female
  Weight: 125 kg

DRUGS (11)
  1. LASILIX SPECIAL /00032601/ [Concomitant]
     Indication: PRODUCT USED FOR UNKNOWN INDICATION
     Dates: start: 20110801
  2. CEFIXIME [Concomitant]
     Indication: URINARY TRACT INFECTION
     Dates: start: 20110801
  3. COLCHIMAX /00728901/ [Concomitant]
     Indication: GOUT
     Dates: start: 20110401
  4. PREDNISOLONE [Concomitant]
     Indication: PRODUCT USED FOR UNKNOWN INDICATION
     Dates: start: 20110801
  5. ADENURIC [Concomitant]
     Indication: PRODUCT USED FOR UNKNOWN INDICATION
     Dates: start: 20110801
  6. ALLOPURINOL [Concomitant]
     Indication: PRODUCT USED FOR UNKNOWN INDICATION
     Dates: start: 20110401
  7. ALLOPURINOL [Suspect]
     Indication: GOUT
     Route: 048
     Dates: start: 20110423, end: 20110801
  8. FLECTOR /00372302/ [Concomitant]
  9. CEFIXIME [Suspect]
     Dates: start: 20110803
  10. VALSARTAN  AND HYDROCHLOROTHIAZIDE [Concomitant]
     Indication: PRODUCT USED FOR UNKNOWN INDICATION
     Dates: start: 20110501
  11. VALSARTAN [Concomitant]
     Indication: PRODUCT USED FOR UNKNOWN INDICATION
     Dates: start: 20110801

REACTIONS (1)
  - TOXIC SKIN ERUPTION [None]
